FAERS Safety Report 13231125 (Version 5)
Quarter: 2017Q3

REPORT INFORMATION
  Report Type: Spontaneous
  Country: IT (occurrence: IT)
  Receive Date: 20170214
  Receipt Date: 20170720
  Transmission Date: 20171127
  Serious: Yes (Death, Other)
  Sender: FDA-Public Use
  Company Number: IT-ALEXION PHARMACEUTICALS INC.-A201701360

PATIENT
  Age: 46 Year
  Sex: Female

DRUGS (4)
  1. SOLIRIS [Suspect]
     Active Substance: ECULIZUMAB
     Dosage: 900 MG, Q2W
     Route: 042
     Dates: start: 20170330
  2. SOLIRIS [Suspect]
     Active Substance: ECULIZUMAB
     Indication: PAROXYSMAL NOCTURNAL HAEMOGLOBINURIA
     Dosage: 600 MG, QW, FOR FOUR WEEKS
     Route: 042
     Dates: start: 20160831
  3. SOLIRIS [Suspect]
     Active Substance: ECULIZUMAB
     Dosage: 900 MG, UNK
     Route: 042
  4. SOLIRIS [Suspect]
     Active Substance: ECULIZUMAB
     Dosage: 600 MG, QW FOR FOUR WEEKS
     Route: 042
     Dates: start: 20170330

REACTIONS (4)
  - Acute myeloid leukaemia [Fatal]
  - Pancytopenia [Unknown]
  - Infection [Fatal]
  - Aplasia [Unknown]

NARRATIVE: CASE EVENT DATE: 20170117
